FAERS Safety Report 4407233-9 (Version None)
Quarter: 2004Q3

REPORT INFORMATION
  Report Type: 
  Country: None (occurrence: None)
  Receive Date: 20040721
  Receipt Date: 20040608
  Transmission Date: 20050211
  Serious: Yes (Death, Hospitalization)
  Sender: FDA-Public Use
  Company Number: US-JNJFOC-20040604322

PATIENT
  Age: 84 Year
  Sex: Female
  Weight: 55.7924 kg

DRUGS (10)
  1. REMICADE [Suspect]
     Indication: CROHN'S DISEASE
     Dosage: 5 MG/KG, INTRAVENOUS
     Route: 042
     Dates: start: 20000423
  2. REMICADE [Suspect]
     Indication: CROHN'S DISEASE
     Dosage: 5 MG/KG, INTRAVENOUS
     Route: 042
     Dates: start: 20010101
  3. REMICADE [Suspect]
     Indication: CROHN'S DISEASE
     Dosage: 5 MG/KG, INTRAVENOUS
     Route: 042
     Dates: start: 20020101
  4. REMICADE [Suspect]
     Indication: CROHN'S DISEASE
     Dosage: 5 MG/KG, INTRAVENOUS
     Route: 042
     Dates: start: 20040211
  5. ASACOL [Suspect]
  6. LESCOL [Concomitant]
  7. SYNTHROID  (LEVOTHYROXNE SODIUM) [Concomitant]
  8. TYLENOL [Concomitant]
  9. PRILOSEC (OMEPRAZOL) [Concomitant]
  10. LASIX [Concomitant]

REACTIONS (5)
  - CARDIAC FAILURE CONGESTIVE [None]
  - METASTATIC NEOPLASM [None]
  - NON-SMALL CELL LUNG CANCER [None]
  - PULMONARY CONGESTION [None]
  - PULMONARY VASCULAR DISORDER [None]
